FAERS Safety Report 9077382 (Version 1)
Quarter: 2013Q1

REPORT INFORMATION
  Report Type: Report from Study
  Country: US (occurrence: US)
  Receive Date: 20130129
  Receipt Date: 20130129
  Transmission Date: 20140127
  Serious: No
  Sender: FDA-Public Use
  Company Number: US-ABBOTT-12P-163-0945818-00

PATIENT
  Age: 67 Year
  Sex: Female

DRUGS (11)
  1. HUMIRA 40 MG/0.8 ML PEN [Suspect]
     Indication: CROHN^S DISEASE
     Dates: start: 20120514
  2. ZYRTEC [Suspect]
     Indication: PRODUCT USED FOR UNKNOWN INDICATION
     Dates: start: 20120613
  3. VITAMIN B12 [Concomitant]
     Indication: CROHN^S DISEASE
     Dosage: MONTHYL
  4. ZESTRIL [Concomitant]
     Indication: HYPERTENSION
  5. QUESTRAN [Concomitant]
     Indication: CROHN^S DISEASE
     Dosage: 4GM DAILY
  6. PENTASA [Concomitant]
     Indication: PRODUCT USED FOR UNKNOWN INDICATION
  7. WOMEN^S ONCE A DAY VITAMIN [Concomitant]
     Indication: PRODUCT USED FOR UNKNOWN INDICATION
  8. CALCIUM [Concomitant]
     Indication: PRODUCT USED FOR UNKNOWN INDICATION
  9. TRICOR [Concomitant]
     Indication: BLOOD TRIGLYCERIDES
  10. FOSAMAX [Concomitant]
     Indication: OSTEOPOROSIS PROPHYLAXIS
  11. ESTRACE [Concomitant]
     Indication: VULVOVAGINAL DRYNESS

REACTIONS (4)
  - Cough [Recovering/Resolving]
  - Oropharyngeal pain [Recovering/Resolving]
  - Nausea [Recovering/Resolving]
  - Upper respiratory tract infection [Recovering/Resolving]
